FAERS Safety Report 4398815-1 (Version None)
Quarter: 2004Q3

REPORT INFORMATION
  Report Type: 
  Country: None (occurrence: None)
  Receive Date: 20040712
  Receipt Date: 20040702
  Transmission Date: 20050211
  Serious: Yes (Disabling)
  Sender: FDA-Public Use
  Company Number: HQWYE917107JUL04

PATIENT
  Sex: Female

DRUGS (2)
  1. EFFEXOR XR [Suspect]
     Dosage: 150 MG
  2. PREMARIN [Suspect]
     Indication: HOT FLUSH
     Dosage: 0.3 MG

REACTIONS (2)
  - ANXIETY [None]
  - DRUG INTERACTION [None]
